FAERS Safety Report 5177455-0 (Version None)
Quarter: 2006Q4

REPORT INFORMATION
  Report Type: 
  Country: None (occurrence: None)
  Receive Date: 20061218
  Receipt Date: 20060722
  Transmission Date: 20070319
  Serious: No
  Sender: FDA-Public Use
  Company Number: US-AMGEN-KDL187408

PATIENT
  Sex: Male

DRUGS (3)
  1. ENBREL [Suspect]
     Indication: ACUTE FEBRILE NEUTROPHILIC DERMATOSIS
     Route: 058
     Dates: start: 20030101
  2. ENBREL [Suspect]
     Indication: VASCULITIS
  3. METHOTREXATE [Concomitant]
     Route: 058
     Dates: start: 20020101

REACTIONS (4)
  - FURUNCLE [None]
  - INGROWN HAIR [None]
  - OSTEOARTHRITIS [None]
  - SKIN IRRITATION [None]
